FAERS Safety Report 4319590-2 (Version None)
Quarter: 2004Q1

REPORT INFORMATION
  Report Type: 
  Country: None (occurrence: None)
  Receive Date: 20040319
  Receipt Date: 20040311
  Transmission Date: 20041129
  Serious: Yes (Hospitalization)
  Sender: FDA-Public Use
  Company Number: US-ROCHE-361630

PATIENT
  Age: 56 Year
  Sex: Male
  Weight: 100.7 kg

DRUGS (4)
  1. PEGASYS [Suspect]
     Indication: HEPATITIS C
     Route: 058
     Dates: start: 20030726
  2. PEGASYS [Suspect]
     Dosage: THERAPY WAS DECREASED TO 1/2 CC.
     Route: 058
     Dates: start: 20040115
  3. COPEGUS [Suspect]
     Indication: HEPATITIS C
     Route: 048
     Dates: start: 20030726
  4. ZOLOFT [Concomitant]
     Indication: DEPRESSION
     Route: 048

REACTIONS (3)
  - CELLULITIS [None]
  - FATIGUE [None]
  - PLATELET COUNT DECREASED [None]
